FAERS Safety Report 22200932 (Version 1)
Quarter: 2023Q2

REPORT INFORMATION
  Report Type: Spontaneous
  Country: NL (occurrence: NL)
  Receive Date: 20230412
  Receipt Date: 20230412
  Transmission Date: 20230721
  Serious: Yes (Life-Threatening)
  Sender: FDA-Public Use
  Company Number: NL-LRB-00872957

PATIENT
  Sex: Male
  Weight: 121 kg

DRUGS (3)
  1. ACETAMINOPHEN [Interacting]
     Active Substance: ACETAMINOPHEN
     Indication: Arthralgia
     Dosage: 1000MG 4 X PER DAG
     Route: 065
     Dates: start: 20230125, end: 20230203
  2. FLUCLOXACILLIN [Interacting]
     Active Substance: FLUCLOXACILLIN
     Indication: Staphylococcal bacteraemia
     Dosage: 12GRAM
     Route: 065
     Dates: start: 20230129, end: 20230203
  3. DEXMEDETOMIDINE [Concomitant]
     Active Substance: DEXMEDETOMIDINE
     Indication: Product used for unknown indication
     Dosage: INFUSIEVLOEISTOF, 4 ?G/ML (MICROGRAM PER MILLILITER)
     Route: 065

REACTIONS (2)
  - Metabolic acidosis [Recovered/Resolved]
  - Drug interaction [Recovered/Resolved]
